FAERS Safety Report 21298606 (Version 1)
Quarter: 2022Q3

REPORT INFORMATION
  Report Type: Spontaneous
  Country: US (occurrence: None)
  Receive Date: 20220903
  Receipt Date: 20220903
  Transmission Date: 20221027
  Serious: Yes (Hospitalization)
  Sender: FDA-Public Use
  Company Number: None

PATIENT
  Age: 73 Year
  Sex: Male
  Weight: 99 kg

DRUGS (2)
  1. CARBOPLATIN [Suspect]
     Active Substance: CARBOPLATIN
     Dates: end: 20220822
  2. ALIMTA [Suspect]
     Active Substance: PEMETREXED DISODIUM
     Dates: end: 20220822

REACTIONS (6)
  - Abdominal discomfort [None]
  - Constipation [None]
  - Dizziness [None]
  - Syncope [None]
  - Hypotension [None]
  - Hypercapnia [None]

NARRATIVE: CASE EVENT DATE: 20220827
